FAERS Safety Report 9367736 (Version 1)
Quarter: 2013Q2

REPORT INFORMATION
  Report Type: Spontaneous
  Country: US (occurrence: US)
  Receive Date: 20130625
  Receipt Date: 20130625
  Transmission Date: 20140414
  Serious: No
  Sender: FDA-Public Use
  Company Number: US-ASTELLAS-2013US006442

PATIENT
  Age: 73 Year
  Sex: Female

DRUGS (1)
  1. VESICARE [Suspect]
     Indication: PRODUCT USED FOR UNKNOWN INDICATION
     Dosage: 10 MG, UID/QD
     Route: 048

REACTIONS (6)
  - Abnormal dreams [Unknown]
  - Insomnia [Unknown]
  - Sleep talking [Unknown]
  - Snoring [Unknown]
  - Dizziness [Unknown]
  - Fatigue [Unknown]
